FAERS Safety Report 23665275 (Version 1)
Quarter: 2024Q1

REPORT INFORMATION
  Report Type: Spontaneous
  Country: US (occurrence: US)
  Receive Date: 20240322
  Receipt Date: 20240322
  Transmission Date: 20240410
  Serious: No
  Sender: FDA-Public Use
  Company Number: US-TPU-TPU-2024-00080

PATIENT

DRUGS (1)
  1. LIDOCAINE [Suspect]
     Active Substance: LIDOCAINE
     Indication: Pain
     Dates: start: 20240225

REACTIONS (3)
  - Wrong technique in product usage process [Unknown]
  - Incorrect product administration duration [Unknown]
  - Drug ineffective for unapproved indication [Unknown]
